FAERS Safety Report 4382660-7 (Version None)
Quarter: 2004Q2

REPORT INFORMATION
  Report Type: 
  Country: None (occurrence: None)
  Receive Date: 20040622
  Receipt Date: 20040615
  Transmission Date: 20050107
  Serious: Yes (Death)
  Sender: FDA-Public Use
  Company Number: CA-GLAXOSMITHKLINE-B0335761A

PATIENT
  Sex: Male

DRUGS (4)
  1. MELPHALAN [Suspect]
     Dosage: 6MG PER DAY
     Route: 048
  2. DECADRON [Suspect]
     Dosage: 20MG PER DAY
     Route: 065
  3. PREDNISONE [Suspect]
     Dosage: 50MG PER DAY
     Route: 048
  4. CYTOXAN [Suspect]
     Dosage: 400MG WEEKLY
     Route: 048

REACTIONS (2)
  - PNEUMONIA [None]
  - SEPSIS [None]
